FAERS Safety Report 20656148 (Version 1)
Quarter: 2022Q1

REPORT INFORMATION
  Report Type: Spontaneous
  Country: BR (occurrence: BR)
  Receive Date: 20220330
  Receipt Date: 20220330
  Transmission Date: 20220423
  Serious: Yes (Other)
  Sender: FDA-Public Use
  Company Number: BR-BoehringerIngelheim-2022-BI-161830

PATIENT
  Sex: Female

DRUGS (4)
  1. BEROTEC [Suspect]
     Active Substance: FENOTEROL HYDROBROMIDE
     Indication: Asthma
     Dosage: 8 DROPS OF BEROTEC DILUTED IN 7 OR 8 ML OF SALINE SOLUTION, WHEN THE PATIENT HAS CRISIS
     Route: 055
  2. ATROVENT [Suspect]
     Active Substance: IPRATROPIUM BROMIDE
     Indication: Asthma
     Dosage: 30 TO 40 DROPS OF ATROVENT FOR EVERY 8 DROPS OF BEROTEC
  3. Alenia [Concomitant]
     Indication: Product used for unknown indication
  4. DESONIDA [Concomitant]
     Indication: Product used for unknown indication

REACTIONS (8)
  - Asthmatic crisis [Unknown]
  - Fatigue [Unknown]
  - Wheezing [Unknown]
  - Anxiety [Unknown]
  - Fear [Unknown]
  - Drug ineffective [Unknown]
  - Body height decreased [Unknown]
  - Mental disorder [Unknown]
